FAERS Safety Report 7295113-3 (Version None)
Quarter: 2011Q1

REPORT INFORMATION
  Report Type: 
  Country: None (occurrence: None)
  Receive Date: 20110216
  Receipt Date: 20110209
  Transmission Date: 20110831
  Serious: Yes (Other)
  Sender: FDA-Public Use
  Company Number: JP-JNJFOC-20110203355

PATIENT
  Age: 38 Year
  Sex: Female
  Weight: 65 kg

DRUGS (9)
  1. REMICADE [Suspect]
     Indication: PSORIASIS
     Route: 042
  2. REMICADE [Suspect]
     Dosage: 5TH INFUSION
     Route: 042
  3. REMICADE [Suspect]
     Dosage: 4TH DOSE
     Route: 042
  4. REMICADE [Suspect]
     Route: 042
  5. CYCLOPHOSPHAMIDE [Concomitant]
     Indication: PSORIASIS
     Route: 048
  6. MYSER [Concomitant]
     Indication: PSORIASIS
     Dosage: STARTED BEFORE INFLIXIMAB THERAPY
     Route: 003
  7. REMICADE [Suspect]
     Route: 042
  8. REMICADE [Suspect]
     Route: 042
  9. BONALFA [Concomitant]
     Indication: PSORIASIS
     Dosage: STARTED PRIOR TO INFLIXIMAB
     Route: 003

REACTIONS (1)
  - PLEURAL EFFUSION [None]
